FAERS Safety Report 15394996 (Version 2)
Quarter: 2018Q4

REPORT INFORMATION
  Report Type: Spontaneous
  Country: US (occurrence: US)
  Receive Date: 20180918
  Receipt Date: 20181010
  Transmission Date: 20190204
  Serious: No
  Sender: FDA-Public Use
  Company Number: US-009507513-1809USA006540

PATIENT
  Age: 43 Year
  Sex: Female
  Weight: 612.7 kg

DRUGS (1)
  1. NEXPLANON [Suspect]
     Active Substance: ETONOGESTREL
     Indication: CONTRACEPTION
     Dosage: 3 YEARS IMPLANT IN THE LEFT ARM
     Route: 059
     Dates: start: 20170111

REACTIONS (2)
  - Weight decreased [Not Recovered/Not Resolved]
  - Menometrorrhagia [Not Recovered/Not Resolved]

NARRATIVE: CASE EVENT DATE: 201701
